FAERS Safety Report 9015644 (Version 1)
Quarter: 2013Q1

REPORT INFORMATION
  Report Type: Spontaneous
  Country: US (occurrence: US)
  Receive Date: 20130116
  Receipt Date: 20130116
  Transmission Date: 20140127
  Serious: Yes (Hospitalization, Other)
  Sender: FDA-Public Use
  Company Number: US-009507513-1301USA004200

PATIENT
  Sex: Male

DRUGS (6)
  1. KIPRES [Suspect]
  2. HOKUNALIN [Suspect]
     Dosage: 200 MG, UNK
     Route: 048
  3. MARZULENE [Suspect]
  4. MUCODYNE [Suspect]
  5. CLARITH [Suspect]
  6. SILODOSIN [Concomitant]
     Route: 048

REACTIONS (2)
  - Cardiomyopathy [Unknown]
  - Appetite disorder [Unknown]
